FAERS Safety Report 23957701 (Version 4)
Quarter: 2025Q3

REPORT INFORMATION
  Report Type: Spontaneous
  Country: US (occurrence: US)
  Receive Date: 20240610
  Receipt Date: 20250911
  Transmission Date: 20251020
  Serious: Yes (Disabling, Other)
  Sender: AMGEN
  Company Number: US-AMGEN-USASP2024110028

PATIENT
  Age: 65 Year
  Sex: Male
  Weight: 100 kg

DRUGS (20)
  1. TEPEZZA [Suspect]
     Active Substance: TEPROTUMUMAB-TRBW
     Indication: Endocrine ophthalmopathy
     Route: 042
     Dates: start: 2020
  2. TEPEZZA [Suspect]
     Active Substance: TEPROTUMUMAB-TRBW
     Indication: Graves^ disease
     Dosage: 1040 MILLIGRAM, Q3WK,  (TOTAL RECEIVED DOSE: 1040 MILLIGRAM)
     Route: 042
     Dates: start: 20220606
  3. TEPEZZA [Suspect]
     Active Substance: TEPROTUMUMAB-TRBW
     Dosage: 2000 MILLIGRAM, Q3WK (TOTAL RECEIVED DOSE: 2050 MILLIGRAM)
     Route: 042
     Dates: start: 20220629
  4. TEPEZZA [Suspect]
     Active Substance: TEPROTUMUMAB-TRBW
     Dosage: 2000 MILLIGRAM, Q3WK
     Route: 042
     Dates: start: 20220720
  5. TEPEZZA [Suspect]
     Active Substance: TEPROTUMUMAB-TRBW
     Dosage: 2000 MILLIGRAM, Q3WK (TOTAL RECEIVED DOSE: 2020 MILLIGRAM)
     Route: 042
     Dates: start: 20220810
  6. TEPEZZA [Suspect]
     Active Substance: TEPROTUMUMAB-TRBW
     Dosage: 2000 UNK, Q3WK (TOTAL RECEIVED DOSE: 2100 MILLIGRAM)
     Route: 042
     Dates: start: 20220831
  7. TEPEZZA [Suspect]
     Active Substance: TEPROTUMUMAB-TRBW
     Dosage: 2000 MILLIGRAM, Q3WK (TOTAL RECEIVED DOSE: 2080 MILLIGRAM)
     Route: 042
     Dates: start: 20220921
  8. TEPEZZA [Suspect]
     Active Substance: TEPROTUMUMAB-TRBW
     Dosage: 2000 MILLIGRAM, Q3WK (TOTAL RECEIVED DOSE: 2080 MILLIGRAM)
     Route: 042
     Dates: start: 20221012
  9. TEPEZZA [Suspect]
     Active Substance: TEPROTUMUMAB-TRBW
     Dosage: 2000 MILLIGRAM, Q3WK (TOTAL RECEIVED DOSE: 2060 MILLIGRAM)
     Route: 042
     Dates: start: 20221102
  10. PREDNISONE [Suspect]
     Active Substance: PREDNISONE
     Indication: Product used for unknown indication
     Dosage: 20 MILLIGRAM, TID (FOR 2 WEEKS)
     Route: 048
     Dates: start: 20220504
  11. PREDNISONE [Suspect]
     Active Substance: PREDNISONE
     Dosage: 20 MILLIGRAM, QD
     Route: 048
     Dates: start: 20220504
  12. PREDNISONE [Suspect]
     Active Substance: PREDNISONE
     Dosage: 20 MILLIGRAM, QD
     Route: 048
     Dates: start: 20220602
  13. LEVOTHYROXINE [Concomitant]
     Active Substance: LEVOTHYROXINE
     Dosage: 175 MICROGRAM, QD
     Route: 048
  14. METHIMAZOLE [Concomitant]
     Active Substance: METHIMAZOLE
     Dosage: 5 MILLIGRAM, QD
     Route: 048
  15. PNEUMOCOCCAL VACCINE NOS [Concomitant]
     Active Substance: PNEUMOCOCCAL VACCINE
     Route: 065
     Dates: start: 2021
  16. MYDRIACYL [Concomitant]
     Active Substance: TROPICAMIDE
     Route: 065
  17. CEQUA [Concomitant]
     Active Substance: CYCLOSPORINE
     Dosage: UNK UNK, BID
     Route: 047
     Dates: start: 20240715, end: 20240715
  18. CYCLOSPORINE [Concomitant]
     Active Substance: CYCLOSPORINE
     Dosage: UNK UNK, BID
     Route: 047
     Dates: start: 20240718, end: 20241015
  19. RESTASIS [Concomitant]
     Active Substance: CYCLOSPORINE
     Indication: Dry eye
     Dosage: UNK UNK, BID
     Route: 047
     Dates: start: 20240715, end: 20241012
  20. REFRESH CLASSIC [Concomitant]
     Active Substance: POLYVINYL ALCOHOL\POVIDONE
     Route: 065

REACTIONS (25)
  - Deafness neurosensory [Not Recovered/Not Resolved]
  - Pain [Unknown]
  - Tinnitus [Not Recovered/Not Resolved]
  - Impaired quality of life [Unknown]
  - Emotional distress [Unknown]
  - Anxiety [Unknown]
  - Concomitant disease aggravated [Unknown]
  - Discomfort [Unknown]
  - Product communication issue [Unknown]
  - Dizziness [Recovered/Resolved]
  - Tendonitis [Unknown]
  - Skin wrinkling [Unknown]
  - Skin atrophy [Unknown]
  - Weight increased [Unknown]
  - Vomiting [Unknown]
  - Blood thyroid stimulating hormone decreased [Unknown]
  - Tri-iodothyronine increased [Unknown]
  - Thyroid stimulating immunoglobulin increased [Unknown]
  - Thyroxine increased [Unknown]
  - Balance disorder [Unknown]
  - Blood pressure systolic abnormal [Unknown]
  - Joint swelling [Unknown]
  - Dry skin [Unknown]
  - Fatigue [Not Recovered/Not Resolved]
  - Nausea [Unknown]

NARRATIVE: CASE EVENT DATE: 20200101
